FAERS Safety Report 7383348-0 (Version None)
Quarter: 2011Q1

REPORT INFORMATION
  Report Type: 
  Country: None (occurrence: None)
  Receive Date: 20110330
  Receipt Date: 20110322
  Transmission Date: 20110831
  Serious: Yes (Other)
  Sender: FDA-Public Use
  Company Number: CN-B.I. PHARMACEUTICALS,INC./RIDGEFIELD-2011-BP-09317YA

PATIENT
  Age: 61 Year
  Sex: Male

DRUGS (1)
  1. TAMSULOSIN [Suspect]
     Dosage: 0.2 MG
     Route: 048
     Dates: start: 20110317, end: 20110318

REACTIONS (5)
  - DEMENTIA [None]
  - INDIFFERENCE [None]
  - TACITURNITY [None]
  - PETIT MAL EPILEPSY [None]
  - INSOMNIA [None]
